FAERS Safety Report 9380466 (Version 8)
Quarter: 2014Q1

REPORT INFORMATION
  Report Type: Spontaneous
  Country: US (occurrence: US)
  Receive Date: 20130702
  Receipt Date: 20140127
  Transmission Date: 20141002
  Serious: Yes (Hospitalization, Disabling, Other)
  Sender: FDA-Public Use
  Company Number: US-009507513-1306USA012112

PATIENT
  Sex: Female
  Weight: 72.56 kg

DRUGS (4)
  1. FOSAMAX [Suspect]
     Indication: OSTEOPOROSIS
     Dosage: UNK
     Route: 048
     Dates: start: 2000, end: 2009
  2. FOSAMAX [Suspect]
     Dosage: 10 MG, QD
     Route: 048
  3. FOSAMAX [Suspect]
     Dosage: 70 MG, QW
     Route: 048
  4. FOSAMAX PLUS D [Suspect]
     Dosage: 70-2800
     Route: 048

REACTIONS (19)
  - Femur fracture [Recovering/Resolving]
  - Intramedullary rod insertion [Unknown]
  - Low turnover osteopathy [Not Recovered/Not Resolved]
  - Osteopenia [Unknown]
  - Impaired healing [Unknown]
  - Osteoarthritis [Unknown]
  - Incision site haematoma [Unknown]
  - Infection [Unknown]
  - Limb asymmetry [Unknown]
  - Weight decreased [Unknown]
  - Sleep disorder [Unknown]
  - Hypothyroidism [Unknown]
  - Varicose vein operation [Unknown]
  - Cataract [Unknown]
  - Cataract operation [Unknown]
  - Osteoarthritis [Unknown]
  - Back pain [Unknown]
  - Pain in extremity [Unknown]
  - Arthralgia [Unknown]
